FAERS Safety Report 5404709-2 (Version None)
Quarter: 2007Q3

REPORT INFORMATION
  Report Type: 
  Country: None (occurrence: None)
  Receive Date: 20070801
  Receipt Date: 20070717
  Transmission Date: 20080115
  Serious: Yes (Death, Hospitalization)
  Sender: FDA-Public Use
  Company Number: 2007001039

PATIENT
  Age: 73 Year
  Sex: Male

DRUGS (14)
  1. ERLOTINIB / PLACEBO (TABLET) [Suspect]
     Indication: NON-SMALL CELL LUNG CANCER
     Dosage: 150 MG QD, ORAL
     Route: 048
     Dates: start: 20070508
  2. DEXAMETHASONE TAB [Concomitant]
  3. ALCLOFENAC (ALCLOFENAC) [Concomitant]
  4. LANSOPRAZOLE [Concomitant]
  5. ALLOPURINOL [Concomitant]
  6. CO-CODAMOL (PANADEINE CO) [Concomitant]
  7. OXYCONTIN [Concomitant]
  8. OXYCODONE HCL [Concomitant]
  9. RAMIPRIL [Concomitant]
  10. WARFARIN SODIUM [Concomitant]
  11. ATENOL (ATENOLOL) [Concomitant]
  12. ATORVASTATIN CALCIUM [Concomitant]
  13. DICLOFENAC (DICLOFENAC) [Concomitant]
  14. DIGOXIN [Concomitant]

REACTIONS (6)
  - APHONIA [None]
  - ATRIAL FIBRILLATION [None]
  - LOWER RESPIRATORY TRACT INFECTION [None]
  - MUCOSAL INFLAMMATION [None]
  - PNEUMONIA [None]
  - SEPSIS [None]
